FAERS Safety Report 9619502 (Version 1)
Quarter: 2013Q4

REPORT INFORMATION
  Report Type: Spontaneous
  Country: US (occurrence: US)
  Receive Date: 20131014
  Receipt Date: 20131014
  Transmission Date: 20140711
  Serious: Yes (Other)
  Sender: FDA-Public Use
  Company Number: US-PFIZER INC-2013292314

PATIENT
  Age: 37 Year
  Sex: Male

DRUGS (2)
  1. PHENYTOIN [Suspect]
     Indication: CONVULSION
     Dosage: 600 MG, DAILY
  2. PHENOBARBITAL [Suspect]
     Indication: CONVULSION
     Dosage: 300 MG, DAILY

REACTIONS (5)
  - Toxicity to various agents [Unknown]
  - Choreoathetosis [Recovered/Resolved]
  - Nystagmus [Recovered/Resolved]
  - Ataxia [Recovered/Resolved]
  - Cerebellar syndrome [Recovered/Resolved]
